FAERS Safety Report 7122074-X (Version None)
Quarter: 2010Q4

REPORT INFORMATION
  Report Type: 
  Country: None (occurrence: None)
  Receive Date: 20101124
  Receipt Date: 20101110
  Transmission Date: 20110411
  Serious: Yes (Other)
  Sender: FDA-Public Use
  Company Number: JP-CELGENEUS-087-21880-10111393

PATIENT
  Sex: Male
  Weight: 53.9 kg

DRUGS (14)
  1. REVLIMID [Suspect]
     Indication: MULTIPLE MYELOMA
     Route: 048
     Dates: start: 20101001, end: 20101002
  2. DEXART [Concomitant]
     Indication: MULTIPLE MYELOMA
     Route: 041
     Dates: start: 20100927, end: 20100930
  3. DENOSINE [Concomitant]
     Route: 041
     Dates: start: 20100918, end: 20101005
  4. MEROPEN [Concomitant]
     Route: 041
     Dates: start: 20100930, end: 20101014
  5. FUNGUARD [Concomitant]
     Route: 041
     Dates: start: 20100915, end: 20101016
  6. PREDNISOLONE [Concomitant]
     Route: 041
     Dates: start: 20101001, end: 20101016
  7. TAKEPRON [Concomitant]
     Indication: PROPHYLAXIS
     Route: 048
     Dates: end: 20101005
  8. TAKEPRON [Concomitant]
     Route: 041
     Dates: start: 20101005, end: 20101016
  9. SERENACE [Concomitant]
     Route: 041
     Dates: start: 20101011
  10. RISPERDAL OD [Concomitant]
     Route: 048
     Dates: start: 20100923, end: 20101005
  11. CYANOCOBALAMIN [Concomitant]
     Route: 048
     Dates: end: 20101005
  12. BAKTAR [Concomitant]
     Indication: PROPHYLAXIS
     Route: 048
     Dates: end: 20101004
  13. ALOSITOL [Concomitant]
     Route: 048
     Dates: start: 20100930, end: 20101005
  14. DUROTEP [Concomitant]
     Route: 065
     Dates: start: 20101005, end: 20101008

REACTIONS (4)
  - ANAEMIA [None]
  - ARRHYTHMIA [None]
  - NEUTROPENIA [None]
  - THROMBOCYTOPENIA [None]
